FAERS Safety Report 10025555 (Version 1)
Quarter: 2014Q1

REPORT INFORMATION
  Report Type: Spontaneous
  Country: DE (occurrence: JP)
  Receive Date: 20140320
  Receipt Date: 20140320
  Transmission Date: 20141002
  Serious: Yes (Other)
  Sender: FDA-Public Use
  Company Number: JP-BRACCO-007918

PATIENT
  Age: 38 Year
  Sex: Male

DRUGS (1)
  1. IOPAMIRON [Suspect]
     Indication: DIAGNOSTIC PROCEDURE
     Dates: start: 201104, end: 201104

REACTIONS (1)
  - Drug-induced liver injury [Unknown]
